FAERS Safety Report 19570597 (Version 1)
Quarter: 2021Q3

REPORT INFORMATION
  Report Type: Spontaneous
  Country: US (occurrence: US)
  Receive Date: 20210715
  Receipt Date: 20210715
  Transmission Date: 20211014
  Serious: No
  Sender: FDA-Public Use
  Company Number: US-PFIZER INC-2021287535

PATIENT
  Age: 72 Year
  Sex: Female
  Weight: 83.9 kg

DRUGS (1)
  1. TALWIN [Suspect]
     Active Substance: PENTAZOCINE LACTATE
     Dosage: UNK

REACTIONS (3)
  - Vomiting [Unknown]
  - Disorientation [Unknown]
  - Drug hypersensitivity [Unknown]
